FAERS Safety Report 6172776-7 (Version None)
Quarter: 2009Q2

REPORT INFORMATION
  Report Type: 
  Country: None (occurrence: None)
  Receive Date: 20090430
  Receipt Date: 20090420
  Transmission Date: 20091009
  Serious: No
  Sender: FDA-Public Use
  Company Number: US-EISAI INC.-E3810-02756-SPO-US

PATIENT
  Age: 54 Year
  Sex: Female
  Weight: 113 kg

DRUGS (2)
  1. ACIPHEX [Suspect]
     Indication: RASH
     Route: 048
     Dates: start: 20090307, end: 20090406
  2. ACIPHEX [Suspect]
     Indication: SWELLING

REACTIONS (2)
  - EYE SWELLING [None]
  - RASH [None]
